FAERS Safety Report 5293639-5 (Version None)
Quarter: 2007Q2

REPORT INFORMATION
  Report Type: 
  Country: None (occurrence: None)
  Receive Date: 20070411
  Receipt Date: 20070328
  Transmission Date: 20071010
  Serious: Yes (Hospitalization)
  Sender: FDA-Public Use
  Company Number: NO-ELI_LILLY_AND_COMPANY-NO200703006209

PATIENT
  Age: 15 Year
  Sex: Male

DRUGS (3)
  1. STRATTERA [Suspect]
     Indication: ATTENTION DEFICIT/HYPERACTIVITY DISORDER
     Dosage: UNK, UNKNOWN
     Route: 048
     Dates: start: 20060112, end: 20060218
  2. RITALIN [Interacting]
     Dosage: UNK, UNK
     Route: 045
     Dates: start: 20060218, end: 20060218
  3. ETHANOL [Interacting]
     Dosage: UNK , UNK

REACTIONS (4)
  - ALCOHOL POISONING [None]
  - DRUG INTERACTION [None]
  - DRUG TOXICITY [None]
  - RESPIRATORY FAILURE [None]
